FAERS Safety Report 6581285-2 (Version None)
Quarter: 2010Q1

REPORT INFORMATION
  Report Type: 
  Country: None (occurrence: None)
  Receive Date: 20100203
  Receipt Date: 20100120
  Transmission Date: 20100710
  Serious: Yes (Other)
  Sender: FDA-Public Use
  Company Number: 1000011547

PATIENT
  Age: 23 Year

DRUGS (1)
  1. ESCITALOPRAM [Suspect]
     Indication: DEPRESSION
     Dates: start: 20090905

REACTIONS (8)
  - BONE PAIN [None]
  - CHILLS [None]
  - CONDITION AGGRAVATED [None]
  - DEATH OF RELATIVE [None]
  - DEPRESSION [None]
  - HEADACHE [None]
  - PYREXIA [None]
  - SUICIDAL IDEATION [None]
